FAERS Safety Report 6024982-X (Version None)
Quarter: 2008Q4

REPORT INFORMATION
  Report Type: 
  Country: None (occurrence: None)
  Receive Date: 20081224
  Receipt Date: 20081208
  Transmission Date: 20090506
  Serious: Yes (Hospitalization)
  Sender: FDA-Public Use
  Company Number: 002#8#2008-00736

PATIENT
  Age: 62 Year
  Sex: Female

DRUGS (2)
  1. OMEPRAZOLE [Suspect]
     Indication: DRUG USE FOR UNKNOWN INDICATION
  2. ESOMEPRAZOLE MAGNESIUM [Suspect]

REACTIONS (9)
  - DYSPHAGIA [None]
  - GIARDIASIS [None]
  - HYPOCALCAEMIA [None]
  - HYPOCALCIURIA [None]
  - HYPOPARATHYROIDISM [None]
  - MALABSORPTION [None]
  - QUADRIPARESIS [None]
  - URINE ANALYSIS ABNORMAL [None]
  - VOMITING [None]
